FAERS Safety Report 4825186-6 (Version None)
Quarter: 2005Q4

REPORT INFORMATION
  Report Type: 
  Country: None (occurrence: None)
  Receive Date: 20051109
  Receipt Date: 20051026
  Transmission Date: 20060501
  Serious: Yes (Other)
  Sender: FDA-Public Use
  Company Number: 2005-10-1747

PATIENT
  Sex: Female

DRUGS (8)
  1. BETAMETHASONE [Suspect]
     Indication: BRONCHITIS
     Dosage: 1DOSEFORM QID ORAL
     Route: 048
     Dates: start: 20050207, end: 20050214
  2. BETAMETHASONE [Suspect]
     Indication: RHINITIS
     Dosage: 1DOSEFORM QID ORAL
     Route: 048
     Dates: start: 20050207, end: 20050214
  3. PREDNISOLONE [Suspect]
     Indication: BRONCHITIS
     Dosage: 1DOSEFORM QID
     Dates: start: 20050207, end: 20050214
  4. PREDNISOLONE [Suspect]
     Indication: RHINITIS
     Dosage: 1DOSEFORM QID
     Dates: start: 20050207, end: 20050214
  5. TRIFLUCAN ORAL [Suspect]
     Indication: BRONCHITIS
     Dosage: 1 DOSEFORM QD ORAL
     Route: 048
     Dates: start: 20050207, end: 20050214
  6. TRIFLUCAN ORAL [Suspect]
     Indication: RHINITIS
     Dosage: 1 DOSEFORM QD ORAL
     Route: 048
     Dates: start: 20050207, end: 20050214
  7. IBUPROFEN TABLETS [Suspect]
     Indication: BRONCHITIS
     Dosage: 1DOSEFORM QID ORAL
     Route: 048
     Dates: start: 20050207, end: 20050214
  8. IBUPROFEN TABLETS [Suspect]
     Indication: RHINITIS
     Dosage: 1DOSEFORM QID ORAL
     Route: 048
     Dates: start: 20050207, end: 20050214

REACTIONS (7)
  - CONGENITAL CYSTIC LUNG [None]
  - DRUG EXPOSURE DURING PREGNANCY [None]
  - FOETAL DISORDER [None]
  - INTESTINAL DILATATION [None]
  - JEJUNAL STENOSIS [None]
  - POLYHYDRAMNIOS [None]
  - PREMATURE LABOUR [None]
